FAERS Safety Report 22526801 (Version 1)
Quarter: 2023Q2

REPORT INFORMATION
  Report Type: Spontaneous
  Country: US (occurrence: None)
  Receive Date: 20230606
  Receipt Date: 20230606
  Transmission Date: 20230721
  Serious: Yes (Other)
  Sender: FDA-Public Use
  Company Number: US-Merck Healthcare KGaA-9406772

PATIENT
  Sex: Female

DRUGS (1)
  1. REBIF [Suspect]
     Active Substance: INTERFERON BETA-1A
     Indication: Multiple sclerosis
     Dosage: REBIF 44 MCG PREFILLED SYRINGE?STRENGTH: 44MCG/0.5 ML
     Route: 058
     Dates: start: 20201210

REACTIONS (7)
  - Depressed level of consciousness [Unknown]
  - Disturbance in attention [Unknown]
  - Sleep disorder [Unknown]
  - Affective disorder [Unknown]
  - Gait disturbance [Unknown]
  - Pain [Unknown]
  - Fatigue [Unknown]
